FAERS Safety Report 5920303-9 (Version None)
Quarter: 2008Q4

REPORT INFORMATION
  Report Type: 
  Country: None (occurrence: None)
  Receive Date: 20081016
  Receipt Date: 20081015
  Transmission Date: 20090506
  Serious: Yes (Other)
  Sender: FDA-Public Use
  Company Number: US-BAYER-200827606NA

PATIENT
  Age: 25 Year
  Sex: Female

DRUGS (1)
  1. MIRENA [Suspect]
     Indication: CONTRACEPTION
     Route: 015
     Dates: start: 20070901

REACTIONS (8)
  - AMENORRHOEA [None]
  - DERMAL CYST [None]
  - DIZZINESS [None]
  - HEADACHE [None]
  - MOOD SWINGS [None]
  - MOTION SICKNESS [None]
  - NAUSEA [None]
  - STAPHYLOCOCCAL INFECTION [None]
